FAERS Safety Report 12603020 (Version 1)
Quarter: 2016Q3

REPORT INFORMATION
  Report Type: Report from Study
  Country: RU (occurrence: RU)
  Receive Date: 20160728
  Receipt Date: 20160728
  Transmission Date: 20161109
  Serious: Yes (Death)
  Sender: FDA-Public Use
  Company Number: PHHY2014RU184557

PATIENT
  Sex: Male
  Weight: 79 kg

DRUGS (3)
  1. RECORMON                                /SCH/ [Concomitant]
     Indication: PRODUCT USED FOR UNKNOWN INDICATION
     Dosage: 10000 ME PERIODICALY
     Route: 065
  2. GLIVEC [Suspect]
     Active Substance: IMATINIB MESYLATE
     Indication: CHRONIC MYELOID LEUKAEMIA
     Dosage: 400 MG, QD
     Route: 048
     Dates: start: 20090320
  3. INSULIN [Concomitant]
     Active Substance: INSULIN NOS
     Indication: DIABETES MELLITUS
     Dosage: 26 CONSTANTELY
     Route: 065

REACTIONS (3)
  - Type 1 diabetes mellitus [Fatal]
  - Chronic myeloid leukaemia [Fatal]
  - Cardiac failure [Fatal]
